FAERS Safety Report 4750674-0 (Version None)
Quarter: 2005Q3

REPORT INFORMATION
  Report Type: 
  Country: None (occurrence: None)
  Receive Date: 20050823
  Receipt Date: 20050811
  Transmission Date: 20060218
  Serious: Yes (Other)
  Sender: FDA-Public Use
  Company Number: AU-BRISTOL-MYERS SQUIBB COMPANY-13072145

PATIENT
  Sex: Female

DRUGS (1)
  1. AVAPRO-HCT TABS 300 MG/12.5 MG [Suspect]
     Route: 048

REACTIONS (2)
  - HEPATIC ENZYME INCREASED [None]
  - NEOPLASM MALIGNANT [None]
